FAERS Safety Report 5801592-8 (Version None)
Quarter: 2008Q2

REPORT INFORMATION
  Report Type: 
  Country: None (occurrence: None)
  Receive Date: 20080626
  Receipt Date: 20071128
  Transmission Date: 20081010
  Serious: No
  Sender: FDA-Public Use
  Company Number: 533781

PATIENT
  Age: 74 Year
  Sex: Female
  Weight: 86.6 kg

DRUGS (5)
  1. XELODA [Suspect]
     Indication: BREAST CANCER METASTATIC
     Dosage: 1500MG 1 PER DAY
     Dates: start: 20070809
  2. XELODA [Suspect]
     Indication: NEOPLASM RECURRENCE
     Dosage: 1500MG 1 PER DAY
     Dates: start: 20070809
  3. LAPATINIB (LAPATINIB) [Suspect]
     Indication: BREAST CANCER METASTATIC
     Dosage: 1250 MG ORAL
     Route: 048
     Dates: start: 20070809
  4. LAPATINIB (LAPATINIB) [Suspect]
     Indication: NEOPLASM RECURRENCE
     Dosage: 1250 MG ORAL
     Route: 048
     Dates: start: 20070809
  5. INSULIN LISPRO (INSULIN LISPRO) [Concomitant]

REACTIONS (6)
  - DIARRHOEA [None]
  - MUCOSAL INFLAMMATION [None]
  - NAUSEA [None]
  - ORAL INTAKE REDUCED [None]
  - STOMATITIS [None]
  - VOMITING [None]
